FAERS Safety Report 9291462 (Version 1)
Quarter: 2013Q2

REPORT INFORMATION
  Report Type: Spontaneous
  Country: US (occurrence: US)
  Receive Date: 20130515
  Receipt Date: 20130515
  Transmission Date: 20140414
  Serious: Yes (Hospitalization)
  Sender: FDA-Public Use
  Company Number: US-GLAXOSMITHKLINE-A0776716A

PATIENT
  Age: 69 Year
  Sex: Male
  Weight: 84.1 kg

DRUGS (1)
  1. AVANDIA [Suspect]
     Indication: DIABETES MELLITUS
     Dosage: 8MG PER DAY
     Route: 048
     Dates: start: 200102, end: 200705

REACTIONS (4)
  - Myocardial ischaemia [Not Recovered/Not Resolved]
  - Blood cholesterol increased [Unknown]
  - Pleural effusion [Unknown]
  - Cardiac failure congestive [Unknown]
